FAERS Safety Report 15364272 (Version 13)
Quarter: 2022Q4

REPORT INFORMATION
  Report Type: Spontaneous
  Country: GB (occurrence: GB)
  Receive Date: 20180909
  Receipt Date: 20221219
  Transmission Date: 20230112
  Serious: Yes (Hospitalization)
  Sender: FDA-Public Use
  Company Number: PHHY2017GB204768

PATIENT
  Age: 49 Year
  Sex: Female

DRUGS (108)
  1. LETROZOLE [Suspect]
     Active Substance: LETROZOLE
     Indication: Breast cancer metastatic
     Dosage: 2.5 MG, QD
     Route: 042
     Dates: start: 20150729
  2. LETROZOLE [Suspect]
     Active Substance: LETROZOLE
     Indication: Breast cancer
     Dosage: 2.5 G, QD (CUMULATIVE DOSE: 314.89584 G)
     Route: 048
     Dates: start: 20150729
  3. LETROZOLE [Suspect]
     Active Substance: LETROZOLE
     Dosage: UNK (STOP DATE:22 JUL 2017)
     Route: 042
     Dates: start: 20170201
  4. DOCETAXEL [Suspect]
     Active Substance: DOCETAXEL
     Indication: Breast cancer metastatic
     Dosage: 130 MG, TIW (NUMBER OF CYCLE PER REGIMEN 6)
     Route: 048
     Dates: start: 20150210, end: 20150708
  5. DOCETAXEL [Suspect]
     Active Substance: DOCETAXEL
     Indication: Breast cancer metastatic
  6. TRASTUZUMAB [Suspect]
     Active Substance: TRASTUZUMAB
     Indication: Breast cancer metastatic
     Dosage: 399 MG, Q3W (CUMULATIVE DOSE: 950.0MG)
     Route: 042
     Dates: start: 20150203, end: 20150203
  7. TRASTUZUMAB [Suspect]
     Active Substance: TRASTUZUMAB
     Indication: Breast cancer
     Dosage: LOADING DOSE
     Route: 042
     Dates: start: 20150209, end: 20150209
  8. TRASTUZUMAB [Suspect]
     Active Substance: TRASTUZUMAB
     Dosage: MAINTENANCE DOSE
     Route: 042
     Dates: start: 20150303, end: 20170201
  9. TRASTUZUMAB [Suspect]
     Active Substance: TRASTUZUMAB
     Dosage: 378 MG, Q3W (MAINTENANCE DOSE)
     Route: 042
     Dates: start: 20150303, end: 20170201
  10. TRASTUZUMAB [Suspect]
     Active Substance: TRASTUZUMAB
     Dosage: 378 MG, Q3W (CUMULATIVE DOSE TO FIRST REACTION: 4518.75 MG)
     Route: 042
     Dates: start: 20151222, end: 20160113
  11. TRASTUZUMAB [Suspect]
     Active Substance: TRASTUZUMAB
     Dosage: 399 MG, Q3W (CUMULATIVE DOSE: 4389.0 MG)
     Route: 042
     Dates: start: 20151111, end: 20151202
  12. TRASTUZUMAB [Suspect]
     Active Substance: TRASTUZUMAB
     Dosage: SUBSEQUENT DOSE RECEIVED ON 11/NOV/2018
     Route: 042
     Dates: start: 20160203, end: 20160203
  13. TRASTUZUMAB [Suspect]
     Active Substance: TRASTUZUMAB
     Dosage: 378 MG, Q3W
     Route: 042
     Dates: start: 20160210
  14. TRASTUZUMAB [Suspect]
     Active Substance: TRASTUZUMAB
     Dosage: 378 MG, Q3W (CUMULATIVE DOSE TO FIRST REACTION: 5670.75MG)
     Route: 042
     Dates: start: 20160224, end: 20160406
  15. TRASTUZUMAB [Suspect]
     Active Substance: TRASTUZUMAB
     Dosage: 420 MG, Q3W (CUMULATIVE DOSE TO FIRST REACTION: 7560.0 MG)
     Route: 042
     Dates: start: 20160427, end: 20170111
  16. TRASTUZUMAB [Suspect]
     Active Substance: TRASTUZUMAB
     Dosage: 240 MG
     Route: 042
     Dates: start: 20170201, end: 20170722
  17. TRASTUZUMAB [Suspect]
     Active Substance: TRASTUZUMAB
     Dosage: 230 MG, TIW
     Route: 042
     Dates: start: 20170816
  18. TRASTUZUMAB [Suspect]
     Active Substance: TRASTUZUMAB
     Dosage: 420 MG, Q3W
     Route: 042
     Dates: start: 20160404, end: 20170111
  19. TRASTUZUMAB [Suspect]
     Active Substance: TRASTUZUMAB
     Dosage: UNK, Q3W
     Route: 042
  20. PERTUZUMAB [Suspect]
     Active Substance: PERTUZUMAB
     Indication: Breast cancer metastatic
     Dosage: 420 MG, TIW
     Route: 042
     Dates: start: 20150209, end: 20170201
  21. PERTUZUMAB [Suspect]
     Active Substance: PERTUZUMAB
     Indication: Breast cancer
     Dosage: LOADING DOSE
     Route: 042
     Dates: start: 20150209, end: 20150209
  22. PERTUZUMAB [Suspect]
     Active Substance: PERTUZUMAB
     Dosage: 420 MG, TIW (CUMULATIVE DOSE: 880.0 MG)
     Route: 042
     Dates: start: 20150209, end: 20170201
  23. PERTUZUMAB [Suspect]
     Active Substance: PERTUZUMAB
     Dosage: 420 MG, TIW
     Route: 042
     Dates: start: 20150304, end: 20170201
  24. PERTUZUMAB [Suspect]
     Active Substance: PERTUZUMAB
     Dosage: 840 MG, TIW (LOADING DOSE)
     Route: 048
     Dates: start: 20150209, end: 20150209
  25. PERTUZUMAB [Suspect]
     Active Substance: PERTUZUMAB
     Dosage: MAINTENANCE DOSE
     Route: 042
     Dates: start: 20150210
  26. PERTUZUMAB [Suspect]
     Active Substance: PERTUZUMAB
     Dosage: 420 MG, TIW (MAINTENANCE DOSE SUBSEQUENT DOSE RECEIVED ON 22/DEC/2015, 24/FEB/2016)
     Route: 065
     Dates: start: 20150204
  27. PERTUZUMAB [Suspect]
     Active Substance: PERTUZUMAB
     Dosage: 420 MG, TIW (MAINTENANCE DOSE)
     Route: 042
  28. PERTUZUMAB [Suspect]
     Active Substance: PERTUZUMAB
     Dosage: 430 MG, TIW (MAINTENANCE DOSE)
     Route: 042
  29. ADO-TRASTUZUMAB EMTANSINE [Suspect]
     Active Substance: ADO-TRASTUZUMAB EMTANSINE
     Indication: Breast cancer metastatic
     Dosage: 504 MG, QD (LOADING DOSE)
     Route: 042
  30. ADO-TRASTUZUMAB EMTANSINE [Suspect]
     Active Substance: ADO-TRASTUZUMAB EMTANSINE
     Indication: Breast cancer
     Dosage: 240 MG, TIW (CUMULATIVE DOSE: 7760.0 MG)
     Route: 042
     Dates: start: 20170201, end: 20170722
  31. ADO-TRASTUZUMAB EMTANSINE [Suspect]
     Active Substance: ADO-TRASTUZUMAB EMTANSINE
     Dosage: 230 MG, TIW
     Route: 042
     Dates: start: 20170816
  32. AMOXICILLIN [Concomitant]
     Active Substance: AMOXICILLIN
     Indication: Product used for unknown indication
     Dosage: 500 MG, TID (0.33 DAY)
     Route: 048
     Dates: start: 20160816
  33. AMOXICILLIN [Concomitant]
     Active Substance: AMOXICILLIN
     Dosage: 1500 MG (UNCOATED, ORAL) (CUMULATIVE DOSE: 856437.5 MG)
     Route: 048
     Dates: start: 20161016, end: 20161023
  34. AMOXICILLIN [Concomitant]
     Active Substance: AMOXICILLIN
     Dosage: 1500 MG, QD(UNCOATED, ORAL)(CUMULATIVE DOSE TO FIRST REACTION: 766437.5 MG)
     Route: 048
     Dates: start: 20160817, end: 20160821
  35. AMOXICILLIN [Concomitant]
     Active Substance: AMOXICILLIN
     Dosage: 500 MG, TID (0.33 DAY)
     Route: 048
     Dates: start: 20161015, end: 20161023
  36. AMOXICILLIN [Concomitant]
     Active Substance: AMOXICILLIN
     Dosage: 500 MG, (0.33 DAY)
     Route: 048
     Dates: start: 20170821, end: 20170826
  37. AMOXICILLIN [Concomitant]
     Active Substance: AMOXICILLIN
     Dosage: 1500 MG, QD (UNCOATED, ORAL)  (CUMULATIVE DOSE TO FIRST REACTION: 1288500.0 MG)
     Route: 048
     Dates: start: 20160821, end: 20160826
  38. AMOXICILLIN [Concomitant]
     Active Substance: AMOXICILLIN
     Dosage: 500 MG
     Route: 065
     Dates: start: 20160817, end: 20160821
  39. AMOXICILLIN [Concomitant]
     Active Substance: AMOXICILLIN
     Dosage: 500 MG
     Route: 065
     Dates: start: 20170821, end: 20170826
  40. AMOXICILLIN [Concomitant]
     Active Substance: AMOXICILLIN
     Dosage: 500 MG
     Route: 065
     Dates: start: 20161015, end: 20161023
  41. NAPROXEN [Concomitant]
     Active Substance: NAPROXEN
     Indication: Product used for unknown indication
     Dosage: 250 MG (SUBSEQUENT DOSE RECEIVED ON 16/JAN/2017, 02/AUG/2017)
     Route: 048
     Dates: start: 20141128
  42. NAPROXEN [Concomitant]
     Active Substance: NAPROXEN
     Dosage: 250 MG SUBSEQUENT DOSE RECEIVED ON 16/JAN/2017, 02/AUG/2017 (UNCOATED, ORAL)
     Route: 048
     Dates: start: 20141128, end: 20191015
  43. NAPROXEN [Concomitant]
     Active Substance: NAPROXEN
     Dosage: 250 MG, (UNCOATED, ORAL)
     Route: 048
     Dates: start: 20170116, end: 20170116
  44. NAPROXEN [Concomitant]
     Active Substance: NAPROXEN
     Dosage: 250 MG (UNCOATED, ORAL)
     Route: 048
     Dates: start: 20170802, end: 20170807
  45. NAPROXEN [Concomitant]
     Active Substance: NAPROXEN
     Dosage: 250 MG
     Route: 048
     Dates: start: 20170802
  46. NAPROXEN [Concomitant]
     Active Substance: NAPROXEN
     Dosage: 250 MG, PRN (UNCOATED, ORAL), AS NECESSARY
     Route: 048
  47. DEXAMETHASONE [Concomitant]
     Active Substance: DEXAMETHASONE
     Indication: Product used for unknown indication
     Dosage: 16 MG, QD (UNCOATED, ORAL) (CUMULATIVE DOSE: 959.3333 MG)
     Route: 048
     Dates: start: 20150524, end: 20150708
  48. DEXAMETHASONE [Concomitant]
     Active Substance: DEXAMETHASONE
     Dosage: 16 MG, QD
     Route: 048
     Dates: start: 20150527, end: 20150708
  49. DEXAMETHASONE [Concomitant]
     Active Substance: DEXAMETHASONE
     Dosage: 4 MG, QD
     Route: 048
     Dates: start: 20170531, end: 20170602
  50. DEXAMETHASONE [Concomitant]
     Active Substance: DEXAMETHASONE
     Dosage: 4 MG, QD(UNCOATED, ORAL) (CUMULATIVE DOSE TO FIRST REACTION: 3108.0 MG)
     Route: 048
     Dates: start: 20170531, end: 20170602
  51. DEXAMETHASONE [Concomitant]
     Active Substance: DEXAMETHASONE
     Dosage: 2 MG, QD
     Route: 048
     Dates: start: 20170616, end: 20170616
  52. DEXAMETHASONE [Concomitant]
     Active Substance: DEXAMETHASONE
     Dosage: 8 MG (0.5 PER DAY)
     Route: 048
     Dates: start: 20170616, end: 20170617
  53. DEXAMETHASONE [Concomitant]
     Active Substance: DEXAMETHASONE
     Dosage: 4 MG QD(UNCOATED, ORAL) (CUMULATIVE DOSE TO FIRST REACTION: 3188.0 MG)
     Route: 048
     Dates: start: 20170620, end: 20170621
  54. DEXAMETHASONE [Concomitant]
     Active Substance: DEXAMETHASONE
     Dosage: 8 MG, QD
     Route: 048
  55. DEXAMETHASONE [Concomitant]
     Active Substance: DEXAMETHASONE
     Dosage: 2 MG, DAILY (UNCOATED, ORAL) (CUMULATIVE DOSE TO FIRST REACTION: 1560.0 MG )
     Route: 048
     Dates: start: 20170603, end: 20170604
  56. DEXAMETHASONE [Concomitant]
     Active Substance: DEXAMETHASONE
     Dosage: 4 MG, BID (0.5 DAY)
     Route: 048
     Dates: start: 20170616, end: 20170617
  57. DEXAMETHASONE [Concomitant]
     Active Substance: DEXAMETHASONE
     Dosage: 8 MG, QD
     Route: 048
     Dates: start: 20170616, end: 20170617
  58. DEXAMETHASONE [Concomitant]
     Active Substance: DEXAMETHASONE
     Dosage: 4 MG (UNCOATED, ORAL)
     Route: 048
     Dates: start: 20170618, end: 20170619
  59. DEXAMETHASONE [Concomitant]
     Active Substance: DEXAMETHASONE
     Dosage: 2 MG
     Route: 048
     Dates: start: 20170620, end: 20170621
  60. DEXAMETHASONE [Concomitant]
     Active Substance: DEXAMETHASONE
     Dosage: 8 MG, QD (UNCOATED, ORAL) (CUMULATIVE DOSE: 6511.6665 MG)
     Route: 048
     Dates: start: 20170616, end: 20170619
  61. DEXAMETHASONE [Concomitant]
     Active Substance: DEXAMETHASONE
     Dosage: 8 MG
     Route: 065
     Dates: start: 20150527, end: 20150708
  62. DEXAMETHASONE [Concomitant]
     Active Substance: DEXAMETHASONE
     Dosage: 4 MG
     Route: 065
     Dates: start: 20170616, end: 20170619
  63. ONDANSETRON [Concomitant]
     Active Substance: ONDANSETRON
     Indication: Product used for unknown indication
     Dosage: 16 MG, QD (CUMULATIVE DOSE: 1007.3333 MG)
     Route: 042
     Dates: start: 20150527, end: 20150608
  64. ONDANSETRON [Concomitant]
     Active Substance: ONDANSETRON
     Dosage: 8 MG (0.5 DAYS)
     Route: 065
     Dates: start: 20150527, end: 20150608
  65. ZOMETA [Concomitant]
     Active Substance: ZOLEDRONIC ACID
     Indication: Product used for unknown indication
     Dosage: 3 MG
     Route: 042
     Dates: start: 20151111
  66. LANSOPRAZOLE [Concomitant]
     Active Substance: LANSOPRAZOLE
     Indication: Product used for unknown indication
     Dosage: 30 MG, QD
     Route: 048
     Dates: start: 20151123
  67. LANSOPRAZOLE [Concomitant]
     Active Substance: LANSOPRAZOLE
     Dosage: UNK
     Route: 048
     Dates: start: 20150306, end: 20150306
  68. LANSOPRAZOLE [Concomitant]
     Active Substance: LANSOPRAZOLE
     Dosage: 30 MG, QD (UNCOATED, ORAL) (CUMULATIVE DOSE: 7290.0MG)
     Route: 048
     Dates: start: 20161123
  69. OMEPRAZOLE [Concomitant]
     Active Substance: OMEPRAZOLE
     Indication: Product used for unknown indication
     Dosage: 20 MG SUBSEQUENT DOSE RECEIVED ON 21 /JUN/2017 (UNCOATED, ORAL)
     Route: 042
     Dates: start: 20170530, end: 20170530
  70. OMEPRAZOLE [Concomitant]
     Active Substance: OMEPRAZOLE
     Dosage: 20 MG (0.5 DAY)
     Route: 048
     Dates: start: 20170531, end: 20170605
  71. OMEPRAZOLE [Concomitant]
     Active Substance: OMEPRAZOLE
     Dosage: 20 MG, DAILY (UNCOATED, ORAL) (CUMULATIVE DOSE TO FIRST REACTION: 15860.0 MG )
     Route: 060
     Dates: start: 20170616, end: 20170621
  72. SUDAFED NASAL DECONGESTANT MAXIMUM STRENGTH [Concomitant]
     Active Substance: PSEUDOEPHEDRINE HYDROCHLORIDE
     Indication: Product used for unknown indication
     Dosage: 60 MG,(UNCOATED, ORAL) AS NECESSARY
     Route: 048
     Dates: start: 20160113, end: 20160203
  73. CALCIUM CARBONATE\CHOLECALCIFEROL [Concomitant]
     Active Substance: CALCIUM CARBONATE\CHOLECALCIFEROL
     Indication: Product used for unknown indication
     Dosage: 1.5 G, BID (PROPHALATIC TREATMENT WITH LETROZOLE)
     Route: 048
     Dates: start: 20150629, end: 20151202
  74. CALCIUM CARBONATE\CHOLECALCIFEROL [Concomitant]
     Active Substance: CALCIUM CARBONATE\CHOLECALCIFEROL
     Dosage: 1.5 G, BID
     Route: 065
     Dates: start: 20150729, end: 20151202
  75. CALCIUM CARBONATE\CHOLECALCIFEROL [Concomitant]
     Active Substance: CALCIUM CARBONATE\CHOLECALCIFEROL
     Dosage: 1.5 G, TID (0.33  DAY)
     Route: 048
     Dates: start: 20151203, end: 20190813
  76. CALCIUM CARBONATE\CHOLECALCIFEROL [Concomitant]
     Active Substance: CALCIUM CARBONATE\CHOLECALCIFEROL
     Dosage: 1.5 G
     Route: 065
     Dates: start: 20151203, end: 20190813
  77. CALCIUM CARBONATE\CHOLECALCIFEROL [Concomitant]
     Active Substance: CALCIUM CARBONATE\CHOLECALCIFEROL
     Dosage: 1.5 G
     Route: 065
     Dates: start: 20150729, end: 20151202
  78. BETAMETHASONE VALERATE\FUSIDIC ACID [Concomitant]
     Active Substance: BETAMETHASONE VALERATE\FUSIDIC ACID
     Indication: Product used for unknown indication
     Dosage: 0.1 %, AS NECESSARY
     Route: 061
     Dates: start: 20151123
  79. FYBOGEL [Concomitant]
     Active Substance: HERBALS\PLANTAGO OVATA SEED
     Indication: Constipation
     Dosage: 7 G, QD
     Route: 048
     Dates: start: 20150312, end: 20150314
  80. FYBOGEL [Concomitant]
     Active Substance: HERBALS\PLANTAGO OVATA SEED
     Dosage: 7 G
     Route: 048
     Dates: start: 20150314
  81. FYBOGEL [Concomitant]
     Active Substance: HERBALS\PLANTAGO OVATA SEED
     Dosage: 3.5 G
     Route: 048
     Dates: start: 20150314
  82. FYBOGEL [Concomitant]
     Active Substance: HERBALS\PLANTAGO OVATA SEED
     Dosage: UNK
     Route: 065
  83. FYBOGEL [Concomitant]
     Active Substance: HERBALS\PLANTAGO OVATA SEED
     Dosage: 3.5 G
     Route: 065
     Dates: start: 20150312
  84. METOCLOPRAMIDE [Concomitant]
     Active Substance: METOCLOPRAMIDE
     Indication: Product used for unknown indication
     Dosage: 10 MG (SUBSEQUENT DOSE RECEIVED ON 10/MAY/2017) (UNCOATED, ORAL)
     Route: 048
     Dates: start: 20150527, end: 20150708
  85. METOCLOPRAMIDE [Concomitant]
     Active Substance: METOCLOPRAMIDE
     Dosage: 30 MG, QD (UNCOATED, ORAL)(CUMULATIVE DOSE TO FIRST REACTION: 22680.0 MG)(CUMULATIVE DOSE TO FIRST R
     Route: 048
     Dates: start: 20170510, end: 2017
  86. METOCLOPRAMIDE [Concomitant]
     Active Substance: METOCLOPRAMIDE
     Dosage: 10 MG
     Route: 048
     Dates: start: 20170510, end: 2017
  87. METOCLOPRAMIDE [Concomitant]
     Active Substance: METOCLOPRAMIDE
     Dosage: 2 OTHER
     Route: 065
     Dates: start: 20170510
  88. METOCLOPRAMIDE [Concomitant]
     Active Substance: METOCLOPRAMIDE
     Dosage: 400 MG (UNCOATED, ORAL)
     Route: 048
     Dates: start: 20171001, end: 20171008
  89. PEGFILGRASTIM [Concomitant]
     Active Substance: PEGFILGRASTIM
     Indication: Product used for unknown indication
     Dosage: 6 MG EVERY 3 WEEKS
     Route: 058
     Dates: start: 20150211, end: 20150709
  90. PEGFILGRASTIM [Concomitant]
     Active Substance: PEGFILGRASTIM
     Dosage: 6 MG
     Route: 065
     Dates: start: 20150211, end: 20150709
  91. MOVICOL [Concomitant]
     Active Substance: POLYETHYLENE GLYCOL 3350\POTASSIUM CHLORIDE\SODIUM BICARBONATE\SODIUM CHLORIDE
     Indication: Product used for unknown indication
     Dosage: UNK (2 OTHER)
     Route: 048
     Dates: start: 20170510
  92. LOPERAMIDE [Concomitant]
     Active Substance: LOPERAMIDE
     Indication: Product used for unknown indication
     Dosage: 4 MG (UNCOATED, ORAL)
     Route: 048
     Dates: start: 20150306, end: 20150308
  93. MICONAZOLE NITRATE [Concomitant]
     Active Substance: MICONAZOLE NITRATE
     Indication: Rash
     Dosage: 20 MILLIGRAM (0.5 DAY)
     Route: 061
     Dates: start: 20161129, end: 20170101
  94. MICONAZOLE NITRATE [Concomitant]
     Active Substance: MICONAZOLE NITRATE
     Indication: Rash
  95. AMOXICILLIN\CLAVULANATE POTASSIUM [Concomitant]
     Active Substance: AMOXICILLIN\CLAVULANATE POTASSIUM
     Indication: Product used for unknown indication
     Dosage: 500 MG, QD
     Route: 048
     Dates: start: 20170926
  96. AMOXICILLIN\CLAVULANATE POTASSIUM [Concomitant]
     Active Substance: AMOXICILLIN\CLAVULANATE POTASSIUM
     Dosage: 1500 MG, QD
     Route: 048
     Dates: start: 20171001, end: 20171008
  97. AMOXICILLIN\CLAVULANATE POTASSIUM [Concomitant]
     Active Substance: AMOXICILLIN\CLAVULANATE POTASSIUM
     Dosage: 800 MG, QD, 400 MG, BID (CUMULATIVE DOSE: 760000.0 MG)
     Route: 048
     Dates: start: 20171030, end: 20171105
  98. AMOXICILLIN\CLAVULANATE POTASSIUM [Concomitant]
     Active Substance: AMOXICILLIN\CLAVULANATE POTASSIUM
     Dosage: 1500 MG, QD SUBSEQUENT DOSE RECEIVED ON 30?MAY/2019/TID CUMULATIVE DOSE TO FIRST REACTION: 1705500.0
     Route: 048
     Dates: start: 20180526, end: 20180601
  99. AMOXICILLIN\CLAVULANATE POTASSIUM [Concomitant]
     Active Substance: AMOXICILLIN\CLAVULANATE POTASSIUM
     Dosage: 500 MG
     Route: 048
     Dates: start: 20190530, end: 20190606
  100. METRONIDAZOLE [Concomitant]
     Active Substance: METRONIDAZOLE
     Indication: Product used for unknown indication
     Dosage: 500 MG (0.33 DAY)
     Route: 048
     Dates: start: 20171030, end: 20171105
  101. METRONIDAZOLE [Concomitant]
     Active Substance: METRONIDAZOLE
     Dosage: 1500 MG, QD
     Route: 048
     Dates: start: 20171030, end: 20171105
  102. METRONIDAZOLE [Concomitant]
     Active Substance: METRONIDAZOLE
     Dosage: 1200 MG, QD
     Route: 048
     Dates: start: 20171001, end: 20171008
  103. METRONIDAZOLE [Concomitant]
     Active Substance: METRONIDAZOLE
     Dosage: 400 MG
     Route: 065
     Dates: start: 20171001, end: 20171008
  104. BENZYDAMINE [Concomitant]
     Active Substance: BENZYDAMINE
     Indication: Product used for unknown indication
     Dosage: MOUTHWASH,
     Route: 065
     Dates: start: 20150307, end: 20150311
  105. CHLORHEXIDINE GLUCONATE [Concomitant]
     Active Substance: CHLORHEXIDINE GLUCONATE
     Indication: Product used for unknown indication
     Dosage: 10 ML
     Route: 065
     Dates: start: 20171001, end: 20171008
  106. CHLORHEXIDINE GLUCONATE [Concomitant]
     Active Substance: CHLORHEXIDINE GLUCONATE
     Dosage: UNK
     Route: 065
  107. ACETAMINOPHEN [Concomitant]
     Active Substance: ACETAMINOPHEN
     Indication: Product used for unknown indication
     Dosage: 500 MG, QID
     Route: 048
     Dates: start: 20171001, end: 20171008
  108. ACETAMINOPHEN [Concomitant]
     Active Substance: ACETAMINOPHEN
     Dosage: UNK
     Route: 065

REACTIONS (17)
  - Tooth abscess [Recovered/Resolved]
  - Neuropathy peripheral [Recovered/Resolved]
  - Blood calcium decreased [Recovered/Resolved]
  - Tooth loss [Recovered/Resolved]
  - Dermatitis acneiform [Recovered/Resolved with Sequelae]
  - Weight decreased [Recovered/Resolved]
  - Anxiety [Recovered/Resolved]
  - Tooth abscess [Not Recovered/Not Resolved]
  - Onychomadesis [Recovered/Resolved]
  - Tooth infection [Recovered/Resolved]
  - Joint stiffness [Recovered/Resolved]
  - Alopecia [Recovered/Resolved]
  - Skin fissures [Recovered/Resolved]
  - Dry skin [Recovered/Resolved]
  - Facial pain [Recovered/Resolved]
  - Arthralgia [Recovered/Resolved]
  - Back pain [Recovered/Resolved]

NARRATIVE: CASE EVENT DATE: 20150325
